FAERS Safety Report 22005472 (Version 1)
Quarter: 2023Q1

REPORT INFORMATION
  Report Type: Spontaneous
  Country: US (occurrence: None)
  Receive Date: 20230216
  Receipt Date: 20230216
  Transmission Date: 20230418
  Serious: No
  Sender: FDA-Public Use
  Company Number: None

PATIENT
  Age: 24 Year
  Sex: Female
  Weight: 68.85 kg

DRUGS (1)
  1. MOUNJARO [Suspect]
     Active Substance: TIRZEPATIDE
     Indication: Weight decreased
     Dosage: OTHER FREQUENCY : ONE INJECTION WEEK;?
     Route: 058
     Dates: start: 20220724

REACTIONS (1)
  - Alopecia [None]

NARRATIVE: CASE EVENT DATE: 20230216
